FAERS Safety Report 11599400 (Version 1)
Quarter: 2015Q3

REPORT INFORMATION
  Report Type: Spontaneous
  Country: US (occurrence: US)
  Receive Date: 20150916
  Receipt Date: 20150916
  Transmission Date: 20151125
  Serious: No
  Sender: FDA-Public Use
  Company Number: US-ELI_LILLY_AND_COMPANY-US200711005963

PATIENT
  Sex: Female

DRUGS (3)
  1. FORTEO [Suspect]
     Active Substance: TERIPARATIDE
     Indication: OSTEOPOROSIS
     Dosage: 20 UG, DAILY (1/D)
     Dates: start: 2007
  2. SYNTHROID [Concomitant]
     Active Substance: LEVOTHYROXINE SODIUM
     Dosage: 0.5 D/F, DAILY (1/D)
     Dates: start: 20071126
  3. SYNTHROID [Concomitant]
     Active Substance: LEVOTHYROXINE SODIUM
     Indication: HYPOTHYROIDISM
     Dosage: 0.25 D/F, DAILY (1/D)
     Dates: end: 20071125

REACTIONS (9)
  - Blood thyroid stimulating hormone abnormal [Not Recovered/Not Resolved]
  - Colour blindness [Not Recovered/Not Resolved]
  - Dacryostenosis acquired [Recovering/Resolving]
  - Heart rate increased [Not Recovered/Not Resolved]
  - Visual acuity reduced [Not Recovered/Not Resolved]
  - Blood thyroid stimulating hormone increased [Not Recovered/Not Resolved]
  - Depression [Not Recovered/Not Resolved]
  - General physical health deterioration [Not Recovered/Not Resolved]
  - Memory impairment [Not Recovered/Not Resolved]

NARRATIVE: CASE EVENT DATE: 2007
